FAERS Safety Report 4515333-8 (Version None)
Quarter: 2004Q4

REPORT INFORMATION
  Report Type: 
  Country: None (occurrence: None)
  Receive Date: 20041029
  Receipt Date: 20040830
  Transmission Date: 20050328
  Serious: No
  Sender: FDA-Public Use
  Company Number: 200416603US

PATIENT
  Age: 31 Year
  Sex: Female

DRUGS (7)
  1. KETEK [Suspect]
     Indication: SINUSITIS
     Dosage: 400 X 5 DAYS MG BID
     Dates: start: 20040820
  2. ALBUTEROL [Concomitant]
  3. DUAC [Concomitant]
  4. DIOVAN [Concomitant]
  5. AMMONIUM LACTATE (LAC-HYDRIN) [Concomitant]
  6. VENLAFAXINE HYDROCHLORIDE (EFFEXOR-XR) [Concomitant]
  7. NABUMETONE [Concomitant]

REACTIONS (1)
  - URTICARIA [None]
